FAERS Safety Report 21513841 (Version 2)
Quarter: 2025Q4

REPORT INFORMATION
  Report Type: Report from Study
  Country: EU (occurrence: EU)
  Receive Date: 20221027
  Receipt Date: 20251209
  Transmission Date: 20260117
  Serious: Yes (Other)
  Sender: ROCHE
  Company Number: EU-ROCHE-2766000

PATIENT
  Age: 38 Year
  Sex: Female

DRUGS (2)
  1. OCRELIZUMAB [Suspect]
     Active Substance: OCRELIZUMAB
     Indication: Multiple sclerosis
     Route: 042
  2. OCRELIZUMAB [Suspect]
     Active Substance: OCRELIZUMAB
     Route: 042

REACTIONS (4)
  - Anaemia [Recovered/Resolved]
  - Lymphopenia [Recovered/Resolved]
  - Headache [Recovered/Resolved]
  - Leukopenia [Recovered/Resolved]

NARRATIVE: CASE EVENT DATE: 20210204
